FAERS Safety Report 6696972-5 (Version None)
Quarter: 2010Q2

REPORT INFORMATION
  Report Type: 
  Country: None (occurrence: None)
  Receive Date: 20100426
  Receipt Date: 20100420
  Transmission Date: 20101027
  Serious: Yes (Life-Threatening, Hospitalization)
  Sender: FDA-Public Use
  Company Number: PHHO2010ES05989

PATIENT
  Sex: Male
  Weight: 55 kg

DRUGS (2)
  1. AFINITOR [Suspect]
     Indication: INSULINOMA
     Dosage: 10MG
     Route: 048
     Dates: start: 20100302, end: 20100309
  2. OCTREOTIDE ACETATE [Concomitant]

REACTIONS (5)
  - DIABETIC HYPEROSMOLAR COMA [None]
  - DYSPHAGIA [None]
  - HYPERGLYCAEMIA [None]
  - LOSS OF CONSCIOUSNESS [None]
  - MUCOSAL INFLAMMATION [None]
